FAERS Safety Report 14961790 (Version 1)
Quarter: 2018Q2

REPORT INFORMATION
  Report Type: Spontaneous
  Country: FR (occurrence: FR)
  Receive Date: 20180601
  Receipt Date: 20180601
  Transmission Date: 20180711
  Serious: Yes (Hospitalization)
  Sender: FDA-Public Use
  Company Number: FR-TEVA-2018-FR-900383

PATIENT
  Age: 83 Year
  Sex: Female

DRUGS (20)
  1. ALLOPURINOL. [Suspect]
     Active Substance: ALLOPURINOL
     Indication: GOUT
     Dosage: NOT COMMUNICATED
     Route: 048
     Dates: start: 20180213, end: 20180302
  2. CANDESARTAN CILEXETIL. [Concomitant]
     Active Substance: CANDESARTAN CILEXETIL
     Route: 065
  3. EPINITRIL [Concomitant]
     Active Substance: NITROGLYCERIN
     Route: 065
  4. LAROXYL [Concomitant]
     Active Substance: AMITRIPTYLINE HYDROCHLORIDE
     Route: 065
  5. OGASTORO [Concomitant]
     Active Substance: LANSOPRAZOLE
     Route: 065
  6. LASILIX [Concomitant]
     Active Substance: FUROSEMIDE
     Route: 065
  7. CLAMOXYL (AMOXICILLIN) [Suspect]
     Active Substance: AMOXICILLIN
     Indication: URINARY TRACT INFECTION
     Dosage: 3 DOSAGE FORMS DAILY;
     Route: 048
     Dates: start: 20180212, end: 20180220
  8. TRILEPTAL [Concomitant]
     Active Substance: OXCARBAZEPINE
     Route: 065
  9. CYANOCOBALAMINE [Concomitant]
     Active Substance: CYANOCOBALAMIN
     Route: 065
  10. KARDEGIC [Concomitant]
     Active Substance: ASPIRIN DL-LYSINE
     Route: 065
  11. SPECIAFOLDINE [Concomitant]
     Active Substance: FOLIC ACID
     Route: 065
  12. GAVISCON [Concomitant]
     Active Substance: ALUMINUM HYDROXIDE\MAGNESIUM CARBONATE
     Route: 065
  13. DIFFU K [Concomitant]
     Active Substance: POTASSIUM CHLORIDE
     Route: 065
  14. PRIMPERAN [Concomitant]
     Active Substance: METOCLOPRAMIDE HYDROCHLORIDE
     Route: 065
  15. SPASFON (PHLOROGLUCINOL, TRIMETHYLPHLOROGLUCINOL) [Concomitant]
     Active Substance: PHLOROGLUCINOL\1,3,5-TRIMETHOXYBENZENE
     Route: 065
  16. COLCHICINE OPOCALCIUM 1 MG, COMPRIM? [Suspect]
     Active Substance: COLCHICINE
     Indication: GOUT
     Dosage: NOT COMMUNICATED
     Route: 048
     Dates: start: 20180215, end: 20180302
  17. PREVISCAN (FLUINDIONE) [Concomitant]
     Active Substance: FLUINDIONE
     Route: 065
  18. XANAX [Concomitant]
     Active Substance: ALPRAZOLAM
     Route: 065
  19. MOVICOL [Concomitant]
     Active Substance: POLYETHYLENE GLYCOL 3350\POTASSIUM CHLORIDE\SODIUM BICARBONATE\SODIUM CHLORIDE
     Route: 065
  20. BISOPROLOL (FUMARATE ACIDE DE) [Concomitant]
     Active Substance: BISOPROLOL FUMARATE
     Route: 065

REACTIONS (3)
  - Xerosis [Recovering/Resolving]
  - Pruritus [Recovering/Resolving]
  - Prurigo [Recovering/Resolving]

NARRATIVE: CASE EVENT DATE: 201802
